FAERS Safety Report 18855888 (Version 1)
Quarter: 2021Q1

REPORT INFORMATION
  Report Type: Spontaneous
  Country: FR (occurrence: FR)
  Receive Date: 20210206
  Receipt Date: 20210206
  Transmission Date: 20210420
  Serious: Yes (Other)
  Sender: FDA-Public Use
  Company Number: FR-AUROBINDO-AUR-APL-2021-005014

PATIENT
  Age: 30 Year
  Sex: Male

DRUGS (14)
  1. PANTOPRAZOLE [Suspect]
     Active Substance: PANTOPRAZOLE
     Indication: OESOPHAGITIS
     Dosage: 40 MILLIGRAM
     Route: 042
     Dates: start: 202012, end: 20210107
  2. NEFOPAM HYDROCHLORIDE [Concomitant]
     Active Substance: NEFOPAM HYDROCHLORIDE
     Indication: PRODUCT USED FOR UNKNOWN INDICATION
     Dosage: 80 MILLIGRAM, ONCE A DAY
     Route: 042
  3. PIPERACILLIN SODIUM [Suspect]
     Active Substance: PIPERACILLIN SODIUM
     Indication: ANTIBIOTIC THERAPY
     Dosage: 4 GRAM
     Route: 042
     Dates: start: 20201216, end: 20210107
  4. ENOXAPARIN SODIUM. [Concomitant]
     Active Substance: ENOXAPARIN SODIUM
     Indication: PRODUCT USED FOR UNKNOWN INDICATION
     Dosage: 4000 INTERNATIONAL UNIT, ONCE A DAY
     Route: 042
     Dates: start: 20201217
  5. PARACETAMOL [Concomitant]
     Active Substance: ACETAMINOPHEN
     Indication: PRODUCT USED FOR UNKNOWN INDICATION
     Dosage: 4 GRAM
     Route: 042
     Dates: start: 202012
  6. POVIDONE [Concomitant]
     Active Substance: POVIDONE
     Indication: PRODUCT USED FOR UNKNOWN INDICATION
     Dosage: 2.4 MILLIGRAM (6 GOUTTES/J) (6 DROPS / DAY)
     Route: 047
     Dates: start: 20201211
  7. ZOPICLONE [Concomitant]
     Active Substance: ZOPICLONE
     Indication: PRODUCT USED FOR UNKNOWN INDICATION
     Dosage: 7.5 MILLIGRAM, ONCE A DAY
     Route: 048
     Dates: start: 20201208
  8. LORAZEPAM. [Concomitant]
     Active Substance: LORAZEPAM
     Indication: PRODUCT USED FOR UNKNOWN INDICATION
     Dosage: 2.5 MILLIGRAM, ONCE A DAY
     Route: 048
     Dates: start: 20201209
  9. TRIMEBUTINE MALEATE [Concomitant]
     Active Substance: TRIMEBUTINE MALEATE
     Indication: PRODUCT USED FOR UNKNOWN INDICATION
     Dosage: UNK (INCONNUE) (UNKNOWN)
     Route: 042
  10. RETINOL [Concomitant]
     Active Substance: RETINOL
     Indication: PRODUCT USED FOR UNKNOWN INDICATION
     Dosage: 25000 INTERNATIONAL UNIT (3 APPLICATIONS/J)
     Route: 047
     Dates: start: 20201211
  11. TAZOBACTAM [Suspect]
     Active Substance: TAZOBACTAM
     Indication: ANTIBIOTIC THERAPY
     Dosage: UNK (INCONNUE) (UNKNOWN
     Route: 042
     Dates: start: 20201216, end: 20210107
  12. CARMELLOSE [Concomitant]
     Active Substance: CARBOXYMETHYLCELLULOSE
     Indication: PRODUCT USED FOR UNKNOWN INDICATION
     Dosage: UNK, ONCE A DAY (6 GOUTTES/J (6 DROPS)
     Route: 047
     Dates: start: 20201211
  13. ONDANSETRON [Concomitant]
     Active Substance: ONDANSETRON
     Indication: PRODUCT USED FOR UNKNOWN INDICATION
     Dosage: 12 MILLIGRAM
     Route: 042
     Dates: start: 20201208
  14. CLINDAMYCIN PHOSPHATE. [Suspect]
     Active Substance: CLINDAMYCIN PHOSPHATE
     Indication: ANTIBIOTIC THERAPY
     Dosage: 600 MILLIGRAM
     Route: 042
     Dates: start: 20201216, end: 20210107

REACTIONS (2)
  - Agranulocytosis [Recovered/Resolved]
  - Coronavirus infection [Not Recovered/Not Resolved]

NARRATIVE: CASE EVENT DATE: 20210104
